FAERS Safety Report 11542116 (Version 1)
Quarter: 2015Q3

REPORT INFORMATION
  Report Type: Spontaneous
  Country: CA (occurrence: CA)
  Receive Date: 20150923
  Receipt Date: 20150923
  Transmission Date: 20151125
  Serious: Yes (Other)
  Sender: FDA-Public Use
  Company Number: CA-TEVA-595035ACC

PATIENT
  Age: 49 Year
  Sex: Female
  Weight: 57.2 kg

DRUGS (3)
  1. ADVIL [Concomitant]
     Active Substance: IBUPROFEN
  2. NOVAMOXIN [Suspect]
     Active Substance: AMOXICILLIN
     Indication: TOOTH EXTRACTION
     Dosage: 1500 MILLIGRAM DAILY;
     Route: 048
  3. RATIO-LENOLTEC NO 3 [Concomitant]
     Active Substance: ACETAMINOPHEN\CAFFEINE\CODEINE PHOSPHATE

REACTIONS (8)
  - Syncope [Recovered/Resolved]
  - Malaise [Recovered/Resolved]
  - Urticaria [Recovered/Resolved]
  - Myalgia [Recovered/Resolved]
  - Eye swelling [Recovered/Resolved]
  - Skin sensitisation [Recovered/Resolved]
  - Lip swelling [Recovered/Resolved]
  - Swelling [Recovered/Resolved]
